FAERS Safety Report 17162411 (Version 1)
Quarter: 2019Q4

REPORT INFORMATION
  Report Type: Spontaneous
  Country: US (occurrence: US)
  Receive Date: 20191216
  Receipt Date: 20191216
  Transmission Date: 20200122
  Serious: Yes (Disabling, Other)
  Sender: FDA-Public Use
  Company Number: None

PATIENT
  Age: 57 Year
  Sex: Female
  Weight: 60.75 kg

DRUGS (7)
  1. METROPOLOL TARTARE [Concomitant]
  2. NALTREXONE HCL [Suspect]
     Active Substance: NALTREXONE HYDROCHLORIDE
     Indication: INFLAMMATION
     Dosage: ?          QUANTITY:6 DROP(S);?
     Route: 048
     Dates: start: 20190601, end: 20190715
  3. ZINC. [Concomitant]
     Active Substance: ZINC
  4. COENZYME Q10 [Concomitant]
     Active Substance: UBIDECARENONE
  5. VITAMIN D3 [Concomitant]
     Active Substance: CHOLECALCIFEROL
  6. MULTI VITAMIN [Concomitant]
     Active Substance: VITAMINS
  7. VITAMIN B12 [Concomitant]
     Active Substance: CYANOCOBALAMIN

REACTIONS (1)
  - Lipodystrophy acquired [None]

NARRATIVE: CASE EVENT DATE: 20190803
